FAERS Safety Report 4514583-4 (Version None)
Quarter: 2004Q4

REPORT INFORMATION
  Report Type: 
  Country: None (occurrence: None)
  Receive Date: 20040927
  Receipt Date: 20040525
  Transmission Date: 20050328
  Serious: No
  Sender: FDA-Public Use
  Company Number: US077796

PATIENT
  Age: 83 Year
  Sex: Female
  Weight: 50.8 kg

DRUGS (3)
  1. NEULASTA [Suspect]
     Indication: CHEMOTHERAPY
     Dosage: 6 MG, 1 IN 1 DAYS, SC
     Route: 058
     Dates: start: 20040430, end: 20040430
  2. FLUOROURACIL [Concomitant]
  3. FOLINIC ACID [Concomitant]

REACTIONS (6)
  - ABDOMINAL PAIN [None]
  - ARTHRITIS [None]
  - BACK PAIN [None]
  - BONE PAIN [None]
  - NON-CARDIAC CHEST PAIN [None]
  - PAIN IN EXTREMITY [None]
